FAERS Safety Report 11193300 (Version 1)
Quarter: 2015Q2

REPORT INFORMATION
  Report Type: Spontaneous
  Country: NL (occurrence: NL)
  Receive Date: 20150616
  Receipt Date: 20150616
  Transmission Date: 20150821
  Serious: Yes (Other)
  Sender: FDA-Public Use
  Company Number: NL-TEVA-569705ISR

PATIENT
  Age: 63 Year
  Sex: Male
  Weight: 78 kg

DRUGS (2)
  1. CAPECITABINE TABLET FO 500MG [Concomitant]
     Active Substance: CAPECITABINE
     Dosage: 600 MILLIGRAM DAILY; 2 TIMES A DAY, 2300MG (CAPOX TREATMENTS)
     Route: 048
     Dates: start: 20150312, end: 20150424
  2. OXALIPLATINE INFUSIEPOEDER 100MG [Suspect]
     Active Substance: OXALIPLATIN
     Indication: COLORECTAL CANCER
     Dosage: ONCE EVERY 3 WEEKS, 270MG, FORM OF ADMINISTRATION: POWDER FOR SOLUTION FOR INFUSION
     Route: 042
     Dates: start: 20150312, end: 20150424

REACTIONS (1)
  - Immune thrombocytopenic purpura [Unknown]

NARRATIVE: CASE EVENT DATE: 20150424
